FAERS Safety Report 9125594 (Version 1)
Quarter: 2013Q1

REPORT INFORMATION
  Report Type: Spontaneous
  Country: US (occurrence: US)
  Receive Date: 20130227
  Receipt Date: 20130227
  Transmission Date: 20140127
  Serious: Yes (Death)
  Sender: FDA-Public Use
  Company Number: US-GILEAD-2013-0070444

PATIENT
  Age: 55 Year
  Sex: Male

DRUGS (10)
  1. LETAIRIS [Suspect]
     Indication: PRODUCT USED FOR UNKNOWN INDICATION
     Dosage: 10 MG, QD
     Route: 048
     Dates: start: 20120725, end: 201212
  2. OXYCONTIN [Concomitant]
  3. ALBUTEROL                          /00139501/ [Concomitant]
  4. OMEPRAZOLE [Concomitant]
  5. ESCITALOPRAM [Concomitant]
  6. CIPROFLOXACIN [Concomitant]
  7. XIFAXAN [Concomitant]
  8. REVATIO [Concomitant]
  9. NADOLOL [Concomitant]
  10. SPIRONOLACTONE [Concomitant]

REACTIONS (1)
  - Death [Fatal]
